FAERS Safety Report 9995182 (Version 2)
Quarter: 2014Q2

REPORT INFORMATION
  Report Type: Spontaneous
  Country: IT (occurrence: None)
  Receive Date: 20140306
  Receipt Date: 20140409
  Transmission Date: 20141212
  Serious: Yes (Other)
  Sender: FDA-Public Use
  Company Number: FK201400681

PATIENT
  Age: 51 Year
  Sex: Female

DRUGS (4)
  1. LEVOFLOXACIN [Suspect]
     Indication: ANTIBIOTIC PROPHYLAXIS
     Route: 042
     Dates: start: 20140215, end: 20140215
  2. ATENOLOL (ATENOLOL) (ATENOLOL) [Concomitant]
  3. MODURETIC (MODURETIC) (MODURETIC) [Concomitant]
  4. OMEPRAZEN (OMEPRAZOLE) (OMEPRAZOLE) [Concomitant]

REACTIONS (1)
  - Clonic convulsion [None]
